FAERS Safety Report 5935523-7 (Version None)
Quarter: 2008Q4

REPORT INFORMATION
  Report Type: 
  Country: None (occurrence: None)
  Receive Date: 20081030
  Receipt Date: 20081020
  Transmission Date: 20090506
  Serious: Yes (Death, Life-Threatening)
  Sender: FDA-Public Use
  Company Number: JP-WYE-H06510108

PATIENT
  Sex: Male

DRUGS (12)
  1. ANCARON [Suspect]
     Indication: VENTRICULAR TACHYCARDIA
     Dosage: 1.25 MG/DL AT RATE OF 10 ML/MIN
     Route: 041
     Dates: start: 20080617, end: 20080617
  2. ANCARON [Suspect]
     Dosage: 1.50 MG/DL AT RATE OF 33 ML/HR
     Route: 041
     Dates: start: 20080617, end: 20080617
  3. ANCARON [Suspect]
     Dosage: 1.50 MG/DL AT RATE OF 17 ML/HR
     Route: 042
     Dates: start: 20080617, end: 20080620
  4. ZYVOX [Suspect]
     Route: 042
     Dates: start: 20080616, end: 20080623
  5. DOBUTREX [Concomitant]
     Dosage: DOSE AND FREQUENCY NOT SPECIFIED
     Route: 042
     Dates: start: 20080616, end: 20080702
  6. ARTIST [Concomitant]
     Route: 065
     Dates: end: 20080702
  7. FUTHAN [Concomitant]
     Dosage: 7 ML/HR
     Route: 042
     Dates: start: 20080616, end: 20080702
  8. OMEPRAL [Concomitant]
     Route: 048
     Dates: end: 20080702
  9. BLOPRESS [Concomitant]
     Route: 065
     Dates: end: 20080702
  10. ANCARON [Suspect]
     Route: 048
     Dates: start: 20080618, end: 20080622
  11. ANCARON [Suspect]
     Route: 048
     Dates: start: 20080622, end: 20080624
  12. NOREPINEPHRINE [Concomitant]
     Dosage: 6.05 UNITS AND FREQUENCY NOT SPECIFIED
     Route: 065
     Dates: start: 20080616, end: 20080702

REACTIONS (4)
  - ANAEMIA [None]
  - CONDITION AGGRAVATED [None]
  - JAUNDICE [None]
  - THROMBOCYTOPENIA [None]
